FAERS Safety Report 8964108 (Version 2)
Quarter: 2013Q1

REPORT INFORMATION
  Report Type: Spontaneous
  Country: FR (occurrence: FR)
  Receive Date: 20121213
  Receipt Date: 20130111
  Transmission Date: 20140127
  Serious: Yes (Hospitalization)
  Sender: FDA-Public Use
  Company Number: FR-GLAXOSMITHKLINE-B0849964A

PATIENT
  Age: 72 Year
  Sex: Female
  Weight: 65 kg

DRUGS (3)
  1. REVOLADE [Suspect]
     Indication: AUTOIMMUNE THROMBOCYTOPENIA
     Dosage: 50MG PER DAY
     Route: 048
     Dates: start: 20121105, end: 20121117
  2. TENORDATE [Concomitant]
     Indication: HYPERTENSION
     Route: 048
  3. COAPROVEL [Concomitant]
     Indication: HYPERTENSION
     Route: 048

REACTIONS (3)
  - Toxic skin eruption [Recovered/Resolved]
  - Rash maculo-papular [Recovered/Resolved]
  - Vascular purpura [Recovered/Resolved]
